FAERS Safety Report 21157895 (Version 1)
Quarter: 2022Q3

REPORT INFORMATION
  Report Type: Spontaneous
  Country: BE (occurrence: BE)
  Receive Date: 20220801
  Receipt Date: 20220801
  Transmission Date: 20221027
  Serious: Yes (Other)
  Sender: FDA-Public Use
  Company Number: BE-LUNDBECK-DKLU3050684

PATIENT
  Sex: Female

DRUGS (1)
  1. ESCITALOPRAM OXALATE [Suspect]
     Active Substance: ESCITALOPRAM OXALATE
     Indication: Anxiety

REACTIONS (6)
  - Suicide attempt [Unknown]
  - Suicidal ideation [Unknown]
  - Condition aggravated [Unknown]
  - Decreased interest [Unknown]
  - Depression [Unknown]
  - Therapeutic product effect delayed [Unknown]
